FAERS Safety Report 4786944-X (Version None)
Quarter: 2005Q3

REPORT INFORMATION
  Report Type: 
  Country: None (occurrence: None)
  Receive Date: 20050930
  Receipt Date: 20050210
  Transmission Date: 20060218
  Serious: No
  Sender: FDA-Public Use
  Company Number: 2005FR-00333

PATIENT
  Age: 30 Year
  Sex: Male

DRUGS (1)
  1. ANADIN EXTRA (ASPIRIN, CAFFEINE, PARACETAMOL) [Suspect]
     Indication: ANALGESIC EFFECT
     Dosage: 2 TABLETS ORAL
     Route: 048
     Dates: start: 20020101

REACTIONS (3)
  - ANAPHYLACTIC REACTION [None]
  - SKIN TEST POSITIVE [None]
  - URTICARIA GENERALISED [None]
